FAERS Safety Report 14963878 (Version 1)
Quarter: 2018Q2

REPORT INFORMATION
  Report Type: Spontaneous
  Country: JP (occurrence: JP)
  Receive Date: 20180601
  Receipt Date: 20180601
  Transmission Date: 20180711
  Serious: Yes (Life-Threatening)
  Sender: FDA-Public Use
  Company Number: JP-SA-2018SA115548

PATIENT
  Age: 8 Decade
  Sex: Male

DRUGS (5)
  1. LEVOFOLINATE [CALCIUM LEVOFOLINATE] [Concomitant]
     Indication: COLON CANCER
     Dosage: UNK UNK, BIM
     Route: 041
  2. IRINOTECAN HYDROCHLORIDE. [Concomitant]
     Active Substance: IRINOTECAN HYDROCHLORIDE
     Indication: COLON CANCER
     Dosage: UNK UNK, BIM
     Route: 041
  3. ZALTRAP [Suspect]
     Active Substance: ZIV-AFLIBERCEPT
     Indication: COLON CANCER
     Dosage: 4 UNK, 1X
     Route: 042
     Dates: start: 2018
  4. ZALTRAP [Suspect]
     Active Substance: ZIV-AFLIBERCEPT
     Dosage: 4 UNK, 1X
     Route: 042
     Dates: start: 20180323
  5. FLUOROURACIL. [Concomitant]
     Active Substance: FLUOROURACIL
     Indication: COLON CANCER
     Dosage: UNK UNK, BIM
     Route: 041

REACTIONS (3)
  - Urine protein/creatinine ratio increased [Recovering/Resolving]
  - Blood pressure increased [Not Recovered/Not Resolved]
  - Haematuria [Recovered/Resolved]

NARRATIVE: CASE EVENT DATE: 20180420
